FAERS Safety Report 18107532 (Version 2)
Quarter: 2020Q3

REPORT INFORMATION
  Report Type: Spontaneous
  Country: US (occurrence: US)
  Receive Date: 20200803
  Receipt Date: 20200825
  Transmission Date: 20201103
  Serious: Yes (Other)
  Sender: FDA-Public Use
  Company Number: US-GILEAD-2020-0487812

PATIENT
  Age: 79 Year
  Sex: Male
  Weight: 104.3 kg

DRUGS (30)
  1. INSULIN [Concomitant]
     Active Substance: INSULIN NOS
  2. ONDANSETRON [Concomitant]
     Active Substance: ONDANSETRON
  3. NALOXONE [Concomitant]
     Active Substance: NALOXONE
  4. LEVOTHYROXINE. [Concomitant]
     Active Substance: LEVOTHYROXINE
  5. REMDESIVIR. [Suspect]
     Active Substance: REMDESIVIR
     Dosage: 100 MG, QD
     Route: 042
     Dates: start: 20200723, end: 20200724
  6. ASCORBIC [Concomitant]
  7. ELIQUIS [Concomitant]
     Active Substance: APIXABAN
  8. SODIUM ZIRCONIUM CYCLOSILICATE. [Concomitant]
     Active Substance: SODIUM ZIRCONIUM CYCLOSILICATE
  9. LEVOFLOXACIN. [Concomitant]
     Active Substance: LEVOFLOXACIN
  10. ALBUTEROL HFA [Concomitant]
     Active Substance: ALBUTEROL SULFATE
  11. SODIUM BICARBONATE. [Concomitant]
     Active Substance: SODIUM BICARBONATE
  12. ATORVASTATIN [Concomitant]
     Active Substance: ATORVASTATIN
  13. MIRAPEX [Concomitant]
     Active Substance: PRAMIPEXOLE DIHYDROCHLORIDE
  14. FENTANYL. [Concomitant]
     Active Substance: FENTANYL
  15. ACETAMINOPHEN. [Concomitant]
     Active Substance: ACETAMINOPHEN
  16. METOPROLOL. [Concomitant]
     Active Substance: METOPROLOL
  17. ZINC. [Concomitant]
     Active Substance: ZINC
  18. REMDESIVIR. [Suspect]
     Active Substance: REMDESIVIR
     Indication: COVID-19
     Dosage: 200 MG, QD
     Route: 042
     Dates: start: 20200722, end: 20200722
  19. OXYGEN. [Concomitant]
     Active Substance: OXYGEN
  20. ENOXAPARIN [Concomitant]
     Active Substance: ENOXAPARIN
  21. DEXAMETHASONE. [Concomitant]
     Active Substance: DEXAMETHASONE
  22. PANTOPRAZOLE [Concomitant]
     Active Substance: PANTOPRAZOLE
  23. CHOLECALCIFEROL [Concomitant]
     Active Substance: CHOLECALCIFEROL
  24. PRAMIPEXOLE. [Concomitant]
     Active Substance: PRAMIPEXOLE
  25. BUDESONIDE. [Concomitant]
     Active Substance: BUDESONIDE
  26. MEMANTINE. [Concomitant]
     Active Substance: MEMANTINE
  27. APIXABAN [Concomitant]
     Active Substance: APIXABAN
  28. PROPOFOL. [Concomitant]
     Active Substance: PROPOFOL
  29. PROTONIX [Concomitant]
     Active Substance: PANTOPRAZOLE SODIUM
  30. ASPIRIN [ACETYLSALICYLIC ACID] [Concomitant]
     Active Substance: ASPIRIN

REACTIONS (1)
  - Alanine aminotransferase increased [Recovered/Resolved]

NARRATIVE: CASE EVENT DATE: 20200723
